FAERS Safety Report 10442322 (Version 2)
Quarter: 2014Q3

REPORT INFORMATION
  Report Type: Spontaneous
  Country: US (occurrence: US)
  Receive Date: 20140909
  Receipt Date: 20140924
  Transmission Date: 20150326
  Serious: Yes (Other)
  Sender: FDA-Public Use
  Company Number: US-GILEAD-2014-0114369

PATIENT
  Age: 50 Year
  Sex: Male
  Weight: 100 kg

DRUGS (9)
  1. BECLOMETHASONE                     /00212602/ [Concomitant]
  2. VILAZODONE [Concomitant]
     Active Substance: VILAZODONE
  3. LIPITOR [Suspect]
     Active Substance: ATORVASTATIN CALCIUM
     Indication: PRODUCT USED FOR UNKNOWN INDICATION
     Route: 065
  4. ALBUTEROL HFA [Concomitant]
     Active Substance: ALBUTEROL SULFATE
     Indication: HIV INFECTION
  5. SULINDAC. [Concomitant]
     Active Substance: SULINDAC
  6. ZOLPIDEM [Concomitant]
     Active Substance: ZOLPIDEM\ZOLPIDEM TARTRATE
  7. STRIBILD [Suspect]
     Active Substance: COBICISTAT\ELVITEGRAVIR\EMTRICITABINE\TENOFOVIR DISOPROXIL FUMARATE
     Indication: HIV INFECTION
     Dosage: UNK
     Route: 065
     Dates: start: 201408
  8. TESTOSTERONE. [Concomitant]
     Active Substance: TESTOSTERONE
  9. VARENICLINE [Concomitant]
     Active Substance: VARENICLINE

REACTIONS (4)
  - Feeling abnormal [Unknown]
  - Pain [Recovered/Resolved]
  - Reiter^s syndrome [Unknown]
  - Influenza like illness [Recovered/Resolved]

NARRATIVE: CASE EVENT DATE: 20140815
